FAERS Safety Report 20008674 (Version 2)
Quarter: 2021Q4

REPORT INFORMATION
  Report Type: Spontaneous
  Country: TR (occurrence: TR)
  Receive Date: 20211029
  Receipt Date: 20211115
  Transmission Date: 20220303
  Serious: No
  Sender: FDA-Public Use
  Company Number: TR-LUPIN PHARMACEUTICALS INC.-2021-20483

PATIENT
  Age: 49 Year
  Sex: Female

DRUGS (12)
  1. OLANZAPINE [Suspect]
     Active Substance: OLANZAPINE
     Indication: Mania
     Dosage: 10 MILLIGRAM, QD
     Route: 065
  2. OLANZAPINE [Suspect]
     Active Substance: OLANZAPINE
     Indication: Psychotic symptom
  3. LORAZEPAM [Suspect]
     Active Substance: LORAZEPAM
     Indication: Akathisia
     Dosage: 2 MILLIGRAM, QD
     Route: 065
  4. PROPRANOLOL [Suspect]
     Active Substance: PROPRANOLOL HYDROCHLORIDE
     Indication: Akathisia
     Dosage: 50 MILLIGRAM, QD
     Route: 065
  5. RISPERIDONE [Concomitant]
     Active Substance: RISPERIDONE
     Indication: Mania
     Dosage: 8 MILLIGRAM, QD
     Route: 065
  6. RISPERIDONE [Concomitant]
     Active Substance: RISPERIDONE
     Indication: Akathisia
     Dosage: 4 MILLIGRAM, QD
     Route: 065
  7. RISPERIDONE [Concomitant]
     Active Substance: RISPERIDONE
     Indication: Psychotic symptom
     Dosage: 2 MILLIGRAM, QD
     Route: 065
  8. RISPERIDONE [Concomitant]
     Active Substance: RISPERIDONE
     Dosage: 1 MILLIGRAM, QD
     Route: 065
  9. LITHIUM CARBONATE [Concomitant]
     Active Substance: LITHIUM CARBONATE
     Indication: Mania
     Dosage: 600 MILLIGRAM, QD
     Route: 065
  10. LITHIUM CARBONATE [Concomitant]
     Active Substance: LITHIUM CARBONATE
     Indication: Prophylaxis
  11. BIPERIDEN [Concomitant]
     Active Substance: BIPERIDEN
     Indication: Mania
     Dosage: 4 MILLIGRAM, QD
     Route: 065
  12. BIPERIDEN [Concomitant]
     Active Substance: BIPERIDEN
     Indication: Psychotic symptom

REACTIONS (3)
  - Sedation complication [Unknown]
  - Drug ineffective for unapproved indication [Unknown]
  - Off label use [Unknown]
